FAERS Safety Report 18693767 (Version 1)
Quarter: 2021Q1

REPORT INFORMATION
  Report Type: Spontaneous
  Country: FR (occurrence: FR)
  Receive Date: 20210104
  Receipt Date: 20210104
  Transmission Date: 20210419
  Serious: Yes (Other)
  Sender: FDA-Public Use
  Company Number: FR-SUN PHARMACEUTICAL INDUSTRIES LTD-2020RR-273878

PATIENT
  Age: 74 Year
  Sex: Male

DRUGS (5)
  1. PRIMPERAN [Suspect]
     Active Substance: METOCLOPRAMIDE HYDROCHLORIDE
     Indication: NAUSEA
     Dosage: 30 MILLIGRAM, DAILY
     Route: 048
     Dates: start: 20200806, end: 20200826
  2. TEMOZOLOMIDE. [Suspect]
     Active Substance: TEMOZOLOMIDE
     Indication: GLIOSARCOMA
     Dosage: 120 MILLIGRAM, DAILY
     Route: 048
     Dates: start: 20200806, end: 20200826
  3. PARACETAMOL [Suspect]
     Active Substance: ACETAMINOPHEN
     Indication: PAIN
     Dosage: 3 GRAM, DAILY SI BESOIN
     Route: 048
     Dates: start: 20200717
  4. LANSOPRAZOLE. [Suspect]
     Active Substance: LANSOPRAZOLE
     Indication: GASTRIC ULCER
     Dosage: 30 MILLIGRAM, DAILY
     Route: 048
     Dates: start: 20200717, end: 20200901
  5. MEDROL [Concomitant]
     Active Substance: METHYLPREDNISOLONE
     Indication: NAUSEA
     Dosage: 1 DOSAGE FORM, DAILY
     Route: 048
     Dates: start: 20200717

REACTIONS (1)
  - Mixed liver injury [Recovered/Resolved]

NARRATIVE: CASE EVENT DATE: 20200901
